FAERS Safety Report 6554241-8 (Version None)
Quarter: 2010Q1

REPORT INFORMATION
  Report Type: 
  Country: None (occurrence: None)
  Receive Date: 20100122
  Receipt Date: 20100106
  Transmission Date: 20100710
  Serious: Yes (Death, Hospitalization)
  Sender: FDA-Public Use
  Company Number: 2010AC000033

PATIENT
  Age: 78 Year
  Sex: Male

DRUGS (14)
  1. DIGOXIN [Suspect]
     Dosage: 0.25 MG;QD;PO
     Route: 048
  2. PROTONIX [Concomitant]
  3. COLACE [Concomitant]
  4. ISORSORBIDE DINITRATE [Concomitant]
  5. PROCARDIA [Concomitant]
  6. INSULIN [Concomitant]
  7. GLUCOPHAGE [Concomitant]
  8. ENALAPRIL MALEATE [Concomitant]
  9. ASPIRIN [Concomitant]
  10. MOTRIN [Concomitant]
  11. CLONIDINE [Concomitant]
  12. LOPRESSOR [Concomitant]
  13. SIMVASTATIN [Concomitant]
  14. ZOCOR [Concomitant]

REACTIONS (20)
  - CONFUSIONAL STATE [None]
  - CONSTIPATION [None]
  - DEHYDRATION [None]
  - DYSPNOEA [None]
  - ECONOMIC PROBLEM [None]
  - EJECTION FRACTION DECREASED [None]
  - EMOTIONAL DISORDER [None]
  - GASTRITIS [None]
  - HALLUCINATION [None]
  - HEADACHE [None]
  - HYPERHIDROSIS [None]
  - HYPOGLYCAEMIA [None]
  - INJURY [None]
  - MENTAL STATUS CHANGES [None]
  - NECK PAIN [None]
  - PAIN [None]
  - REGURGITATION [None]
  - RENAL CYST [None]
  - SINUS TACHYCARDIA [None]
  - VENTRICULAR HYPOKINESIA [None]
